FAERS Safety Report 8959992 (Version 2)
Quarter: 2012Q4

REPORT INFORMATION
  Report Type: 
  Country: CH (occurrence: CH)
  Receive Date: 20121211
  Receipt Date: 20121214
  Transmission Date: 20130627
  Serious: Yes (Other)
  Sender: FDA-Public Use
  Company Number: CH-GILEAD-2012-0065097

PATIENT
  Sex: Male

DRUGS (2)
  1. RANOLAZINE [Suspect]
     Indication: CHEST PAIN
  2. COLCHICINE [Interacting]
     Indication: PERICARDIAL EFFUSION
     Dosage: UNK

REACTIONS (6)
  - Diarrhoea [Recovered/Resolved]
  - Myalgia [Recovered/Resolved]
  - Blood creatine phosphokinase increased [Recovered/Resolved]
  - Drug level increased [Recovered/Resolved]
  - Drug interaction [Recovered/Resolved]
  - Nausea [Recovered/Resolved]
